FAERS Safety Report 18160074 (Version 1)
Quarter: 2020Q3

REPORT INFORMATION
  Report Type: Spontaneous
  Country: US (occurrence: US)
  Receive Date: 20200818
  Receipt Date: 20200818
  Transmission Date: 20201103
  Serious: No
  Sender: FDA-Public Use
  Company Number: US-AMGEN-USASP2020131731

PATIENT
  Sex: Female

DRUGS (2)
  1. ENBREL [Suspect]
     Active Substance: ETANERCEPT
     Indication: CEREBROVASCULAR ACCIDENT
     Dosage: UNK (PARASPINALLY )
     Route: 065
  2. ENBREL [Suspect]
     Active Substance: ETANERCEPT
     Indication: APHASIA

REACTIONS (2)
  - Off label use [Unknown]
  - Therapeutic response unexpected [Unknown]
